FAERS Safety Report 9304305 (Version 1)
Quarter: 2013Q2

REPORT INFORMATION
  Report Type: Spontaneous
  Country: US (occurrence: US)
  Receive Date: 20130522
  Receipt Date: 20130522
  Transmission Date: 20140414
  Serious: Yes (Hospitalization)
  Sender: FDA-Public Use
  Company Number: US-ASTRAZENECA-2012SE18169

PATIENT
  Age: 54 Year
  Sex: Male
  Weight: 154.2 kg

DRUGS (9)
  1. CRESTOR [Suspect]
     Indication: HIGH DENSITY LIPOPROTEIN DECREASED
     Route: 048
     Dates: start: 201108, end: 201204
  2. CRESTOR [Suspect]
     Indication: HIGH DENSITY LIPOPROTEIN DECREASED
     Route: 048
     Dates: start: 201205
  3. LISINOPRIL [Suspect]
     Indication: HYPERTENSION
     Route: 048
     Dates: start: 1987, end: 201205
  4. LISINOPRIL/HCTZ [Suspect]
     Indication: HYPERTENSION
     Dosage: 20-25 MG DAILY
     Route: 048
     Dates: start: 201205
  5. LISINOPRIL/HCTZ [Suspect]
     Indication: OEDEMA PERIPHERAL
     Dosage: 20-25 MG DAILY
     Route: 048
     Dates: start: 201205
  6. BABY ASPIRIN [Concomitant]
  7. ACTOS [Concomitant]
  8. GLYBURIDE [Concomitant]
  9. METFORMIN [Concomitant]

REACTIONS (6)
  - Localised infection [Unknown]
  - Pyrexia [Unknown]
  - Rash erythematous [Unknown]
  - Local swelling [Unknown]
  - Blood glucose increased [Recovering/Resolving]
  - Intentional drug misuse [Recovered/Resolved]
